FAERS Safety Report 25680710 (Version 1)
Quarter: 2025Q3

REPORT INFORMATION
  Report Type: Report from Study
  Country: EU (occurrence: EU)
  Receive Date: 20250814
  Receipt Date: 20250814
  Transmission Date: 20251020
  Serious: Yes (Disabling)
  Sender: ALNYLAM PHARMACEUTICALS
  Company Number: EU-ALNYLAM PHARMACEUTICALS, INC.-ALN-2025-004863

PATIENT

DRUGS (1)
  1. AMVUTTRA [Suspect]
     Active Substance: VUTRISIRAN
     Indication: Product used for unknown indication
     Dosage: 25 MILLIGRAM, Q3M
     Route: 058

REACTIONS (3)
  - Paraesthesia [Unknown]
  - Sensory loss [Unknown]
  - Carpal tunnel decompression [Unknown]
